FAERS Safety Report 4888594-3 (Version None)
Quarter: 2005Q4

REPORT INFORMATION
  Report Type: 
  Country: None (occurrence: None)
  Receive Date: 20051215
  Receipt Date: 20041130
  Transmission Date: 20060501
  Serious: Yes (Other)
  Sender: FDA-Public Use
  Company Number: 2004106810

PATIENT
  Sex: Female
  Weight: 117.9352 kg

DRUGS (8)
  1. BEXTRA [Suspect]
     Indication: RHEUMATOID ARTHRITIS
     Dosage: 20 MG (20 MG, 1 IN 1 D) ORAL
     Route: 048
     Dates: start: 20041001
  2. TIZANIDINE HCL [Concomitant]
  3. ULTRACET [Concomitant]
  4. METOPROLOL SUCCINATE [Concomitant]
  5. NIFEDIPINE [Concomitant]
  6. TERAZOSIN HYDRACHLORIDE (TERAZOSIN HYDRACHLORIDE) [Concomitant]
  7. FOSINOPRIL SODIUM [Concomitant]
  8. HYDROCHLOROTHIAZIDE [Concomitant]

REACTIONS (4)
  - DRUG INEFFECTIVE [None]
  - DYSPEPSIA [None]
  - HYPOKALAEMIA [None]
  - PALPITATIONS [None]
